FAERS Safety Report 7783366-4 (Version None)
Quarter: 2011Q3

REPORT INFORMATION
  Report Type: 
  Country: None (occurrence: None)
  Receive Date: 20110928
  Receipt Date: 20110922
  Transmission Date: 20111222
  Serious: Yes (Death, Hospitalization)
  Sender: FDA-Public Use
  Company Number: JP-BAYER-201014745BYL

PATIENT
  Age: 63 Year
  Sex: Male
  Weight: 54 kg

DRUGS (18)
  1. NEXAVAR [Suspect]
     Dosage: 400 MG (DAILY DOSE), , ORAL
     Route: 048
     Dates: start: 20090911, end: 20091110
  2. MUCOSTA [Concomitant]
     Dosage: 300 MG (DAILY DOSE), , ORAL
     Route: 048
     Dates: start: 20090226
  3. PRIMPERAN TAB [Concomitant]
     Dosage: 15 MG (DAILY DOSE), , ORAL
     Route: 048
     Dates: start: 20090729
  4. CLARITHROMYCIN [Concomitant]
     Dosage: DAILY DOSE 200 MG
     Route: 048
     Dates: start: 20091123, end: 20091124
  5. ROHYPNOL [Concomitant]
     Dosage: 1 MG (DAILY DOSE), , ORAL
     Route: 048
     Dates: start: 20090202, end: 20090216
  6. ISODINE [Concomitant]
     Route: 048
     Dates: start: 20090205
  7. LOXONIN [Concomitant]
     Dosage: 180 MG (DAILY DOSE), , ORAL
     Route: 048
     Dates: start: 20090226
  8. ADONA [Concomitant]
     Dosage: 90 MG (DAILY DOSE), , ORAL
     Route: 048
     Dates: start: 20090409
  9. NEXAVAR [Suspect]
     Indication: RENAL CELL CARCINOMA
     Dosage: 800 MG (DAILY DOSE), , ORAL
     Route: 048
     Dates: start: 20090130, end: 20090910
  10. EURODIN [Concomitant]
     Dosage: 2 MG (DAILY DOSE), , ORAL
     Route: 048
     Dates: start: 20090308
  11. MORPHINE HCL ELIXIR [Concomitant]
     Dosage: 30 MG (DAILY DOSE), , ORAL
     Route: 048
     Dates: start: 20090703
  12. INTRON A [Concomitant]
     Dosage: 300 IU (DAILY DOSE), , UNKNOWN
     Route: 058
     Dates: start: 20090731, end: 20091109
  13. DECADRON [Concomitant]
     Dosage: 1 MG (DAILY DOSE), , ORAL
     Route: 048
     Dates: start: 20090909
  14. NEXAVAR [Suspect]
     Dosage: 200 MG (DAILY DOSE), , ORAL
     Route: 048
     Dates: start: 20091111, end: 20091121
  15. TRAVELMIN [Concomitant]
     Dosage: DAILY DOSE 2 DF
     Route: 048
     Dates: start: 20090814
  16. ZOLPIDEM [Concomitant]
     Dosage: 5 MG (DAILY DOSE), , ORAL
     Route: 048
     Dates: start: 20090309
  17. TRANEXAMIC ACID [Concomitant]
     Dosage: 750 MG (DAILY DOSE), , ORAL
     Route: 048
     Dates: start: 20090409
  18. PROCHLORPERAZINE [Concomitant]
     Dosage: 15 MG (DAILY DOSE), , ORAL
     Route: 048
     Dates: start: 20090703

REACTIONS (7)
  - HYPERTENSION [None]
  - GASTROOESOPHAGEAL REFLUX DISEASE [None]
  - HYPOTHYROIDISM [None]
  - RENAL CELL CARCINOMA [None]
  - DIARRHOEA [None]
  - MALAISE [None]
  - PALMAR-PLANTAR ERYTHRODYSAESTHESIA SYNDROME [None]
